FAERS Safety Report 8167977 (Version 3)
Quarter: 2013Q3

REPORT INFORMATION
  Report Type: Report from Study
  Country: US (occurrence: US)
  Receive Date: 20111004
  Receipt Date: 20130923
  Transmission Date: 20140515
  Serious: Yes (Hospitalization)
  Sender: FDA-Public Use
  Company Number: US-UCBSA-042279

PATIENT
  Age: 14 Year
  Sex: Female
  Weight: 46 kg

DRUGS (9)
  1. LACOSAMIDE [Suspect]
     Indication: CONVULSION
     Route: 048
     Dates: start: 20110727, end: 20111019
  2. TRILEPTAL [Concomitant]
     Indication: EPILEPSY
     Route: 048
     Dates: start: 20110201
  3. KEPPRA [Concomitant]
     Indication: EPILEPSY
     Route: 048
     Dates: start: 20110620
  4. ELAVIL [Concomitant]
     Indication: FATIGUE
     Route: 048
     Dates: start: 20110824, end: 2011
  5. ELAVIL [Concomitant]
     Indication: HEADACHE
     Route: 048
     Dates: start: 20110824, end: 2011
  6. ELAVIL [Concomitant]
     Indication: FATIGUE
     Dosage: 20MG DAILY
  7. ELAVIL [Concomitant]
     Indication: HEADACHE
     Dosage: 20MG DAILY
  8. CARAFATE [Concomitant]
     Indication: ABDOMINAL PAIN
     Route: 048
     Dates: start: 201109
  9. NEURONTIN [Concomitant]
     Indication: NEURALGIA
     Route: 048
     Dates: start: 20110909

REACTIONS (3)
  - Epilepsy [Recovered/Resolved]
  - Migraine [Recovering/Resolving]
  - Vomiting [Recovering/Resolving]
